FAERS Safety Report 18992933 (Version 2)
Quarter: 2021Q1

REPORT INFORMATION
  Report Type: Spontaneous
  Country: FR (occurrence: FR)
  Receive Date: 20210310
  Receipt Date: 20210318
  Transmission Date: 20210420
  Serious: Yes (Other)
  Sender: FDA-Public Use
  Company Number: FR-SA-2021SA069298

PATIENT
  Age: 44 Year
  Sex: Female

DRUGS (5)
  1. DARUNAVIR [Concomitant]
     Active Substance: DARUNAVIR
     Indication: HIV INFECTION
     Dosage: UNK
     Route: 065
     Dates: start: 2013
  2. EMTRICITABINE;TENOFOVIR [Concomitant]
     Active Substance: EMTRICITABINE\TENOFOVIR
     Indication: HIV INFECTION
     Dosage: UNK
     Route: 065
     Dates: start: 2013
  3. RITONAVIR. [Interacting]
     Active Substance: RITONAVIR
     Indication: HIV INFECTION
     Dosage: UNK
     Route: 065
     Dates: start: 2013
  4. RITONAVIR. [Interacting]
     Active Substance: RITONAVIR
     Indication: HEPATITIS B
  5. TRIAMCINOLONE ACETONIDE. [Suspect]
     Active Substance: TRIAMCINOLONE ACETONIDE
     Indication: EPICONDYLITIS
     Dosage: UNK (INJECTION AT RIGHT ELBOW)
     Route: 065
     Dates: start: 201910

REACTIONS (10)
  - Cushingoid [Recovered/Resolved]
  - CD4 lymphocytes decreased [Recovered/Resolved]
  - Kaposi^s sarcoma [Recovered/Resolved]
  - Drug interaction [Recovered/Resolved]
  - Disease recurrence [Recovered/Resolved]
  - Skin lesion [Not Recovered/Not Resolved]
  - Weight increased [Recovered/Resolved]
  - Adrenal insufficiency [Recovered/Resolved]
  - Acne [Recovered/Resolved]
  - Hyperadrenocorticism [Recovered/Resolved]

NARRATIVE: CASE EVENT DATE: 201912
